FAERS Safety Report 14998053 (Version 1)
Quarter: 2018Q2

REPORT INFORMATION
  Report Type: Report from Study
  Country: US (occurrence: US)
  Receive Date: 20180611
  Receipt Date: 20180611
  Transmission Date: 20180711
  Serious: Yes (Death)
  Sender: FDA-Public Use
  Company Number: US-ACTELION-A-NJ2018-172948

PATIENT
  Age: 6 Month
  Sex: Female

DRUGS (1)
  1. BOSENTAN TABLET 32 MG PED US [Suspect]
     Active Substance: BOSENTAN
     Indication: PULMONARY HYPERTENSION
     Dosage: 8 MG, BID
     Route: 048
     Dates: start: 20180517

REACTIONS (3)
  - Death [Fatal]
  - Product use issue [Unknown]
  - No adverse event [Unknown]

NARRATIVE: CASE EVENT DATE: 201805
